FAERS Safety Report 9613608 (Version 2)
Quarter: 2013Q4

REPORT INFORMATION
  Report Type: Spontaneous
  Country: US (occurrence: None)
  Receive Date: 20131008
  Receipt Date: 20131016
  Transmission Date: 20140711
  Serious: Yes (Hospitalization)
  Sender: FDA-Public Use
  Company Number: UTC-038463

PATIENT
  Age: 65 Year
  Sex: Female
  Weight: 70.45 kg

DRUGS (3)
  1. REMODULIN [Suspect]
     Indication: PULMONARY ARTERIAL HYPERTENSION
     Dosage: 102.24 UG/KG (0.071 UG/KG, 1 IN 1 MIN), SUBCUTANEOUS
     Route: 058
     Dates: start: 20080721
  2. REVATIO (SILDENAFIL CITRATE) (UNKNOWN) (SILDENAFIL) [Concomitant]
  3. WARFARIN [Concomitant]

REACTIONS (4)
  - Infusion site haemorrhage [None]
  - Infusion site pain [None]
  - Infusion site infection [None]
  - Infusion site haematoma [None]
